FAERS Safety Report 23733487 (Version 1)
Quarter: 2024Q2

REPORT INFORMATION
  Report Type: Spontaneous
  Country: CA (occurrence: CA)
  Receive Date: 20240411
  Receipt Date: 20240411
  Transmission Date: 20240716
  Serious: Yes (Hospitalization, Other)
  Sender: FDA-Public Use
  Company Number: CA-HLS-202400952

PATIENT
  Age: 74 Year
  Sex: Female

DRUGS (10)
  1. ALENDRONATE SODIUM [Concomitant]
     Active Substance: ALENDRONATE SODIUM
     Indication: Osteoporosis
     Dosage: AMOUNT: 70 MILLIGRAM?UNKNOWN DOSAGE FORM
     Route: 065
  2. ARIPIPRAZOLE [Suspect]
     Active Substance: ARIPIPRAZOLE
     Indication: Psychotic symptom
     Dosage: 1 EVERY 1 DAYS?AMOUNT: 20 MILLIGRAM?NOT SPECIFIED DOSAGE FORM
     Route: 065
  3. ARIPIPRAZOLE [Suspect]
     Active Substance: ARIPIPRAZOLE
     Indication: Psychotic symptom
     Dosage: 1 EVERY 1 DAYS?AMOUNT: 30 MILLIGRAM
     Route: 065
  4. CLOZAPINE [Suspect]
     Active Substance: CLOZAPINE
     Indication: Schizophrenia
     Dosage: AMOUNT: 100 MILLIGRAM
     Route: 065
  5. CLOZAPINE [Suspect]
     Active Substance: CLOZAPINE
     Indication: Schizophrenia
     Dosage: AMOUNT: 25 MILLIGRAM
     Route: 065
  6. CLOZAPINE [Suspect]
     Active Substance: CLOZAPINE
     Indication: Schizophrenia
     Dosage: 1 EVERY 1 DAYS?AMOUNT: 150 MILLIGRAM?TABLETS DOSAGE FORM
     Route: 065
  7. CLOZAPINE [Suspect]
     Active Substance: CLOZAPINE
     Indication: Schizophrenia
     Dosage: 1 EVERY 1 DAYS?AMOUNT: 50 MILLIGRAM
     Route: 065
  8. MELATONIN [Concomitant]
     Active Substance: MELATONIN
     Indication: Insomnia
     Dosage: 1 EVERY 1 DAYS?AMOUNT: 3 MILLIGRAM?NOT SPECIFIED DOSAGE FORM
     Route: 065
  9. RIVAROXABAN [Concomitant]
     Active Substance: RIVAROXABAN
     Indication: Atrial fibrillation
     Dosage: 1 EVERY 1 DAYS?AMOUNT: 20 MILLIGRAM?NOT SPECIFIED DOSAGE FORM
     Route: 065
  10. SENNOSIDES [Concomitant]
     Active Substance: SENNOSIDES
     Indication: Constipation
     Dosage: 2 EVERY 1 DAYS?AMOUNT: 12 MILLIGRAM?NOT SPECIFIED DOSAGE FORM
     Route: 065

REACTIONS (7)
  - Balance disorder [Unknown]
  - C-reactive protein increased [Unknown]
  - Drug ineffective for unapproved indication [Unknown]
  - Fall [Unknown]
  - Leukocytosis [Unknown]
  - Myoclonus [Unknown]
  - Psychotic symptom [Unknown]
